FAERS Safety Report 25330451 (Version 1)
Quarter: 2025Q2

REPORT INFORMATION
  Report Type: Report from Study
  Country: US (occurrence: US)
  Receive Date: 20250519
  Receipt Date: 20250519
  Transmission Date: 20250717
  Serious: Yes (Other)
  Sender: BOEHRINGER INGELHEIM
  Company Number: US-BoehringerIngelheim-2025-BI-025867

PATIENT
  Age: 81 Year
  Sex: Female

DRUGS (1)
  1. JARDIANCE [Suspect]
     Active Substance: EMPAGLIFLOZIN
     Indication: Product used for unknown indication
     Dates: start: 20241003

REACTIONS (2)
  - Skin ulcer [Not Recovered/Not Resolved]
  - Perineal ulceration [Not Recovered/Not Resolved]

NARRATIVE: CASE EVENT DATE: 20241001
